FAERS Safety Report 14233623 (Version 2)
Quarter: 2018Q2

REPORT INFORMATION
  Report Type: Spontaneous
  Country: FR (occurrence: FR)
  Receive Date: 20171129
  Receipt Date: 20180426
  Transmission Date: 20180711
  Serious: Yes (Death)
  Sender: FDA-Public Use
  Company Number: FR-ROCHE-2026163

PATIENT
  Age: 61 Year
  Sex: Female

DRUGS (19)
  1. CELLCEPT [Suspect]
     Active Substance: MYCOPHENOLATE MOFETIL\MYCOPHENOLATE MOFETIL HYDROCHLORIDE
     Indication: PROPHYLAXIS AGAINST TRANSPLANT REJECTION
     Route: 048
     Dates: start: 20170804, end: 20170813
  2. ROVALCYTE [Suspect]
     Active Substance: VALGANCICLOVIR HYDROCHLORIDE
     Indication: PRODUCT USED FOR UNKNOWN INDICATION
     Route: 048
     Dates: start: 20170804, end: 20170813
  3. PREVISCAN (FRANCE) [Concomitant]
     Active Substance: FLUINDIONE
  4. LEDERFOLINE [Concomitant]
     Active Substance: LEUCOVORIN CALCIUM
  5. FUROSEMIDE. [Concomitant]
     Active Substance: FUROSEMIDE
  6. ERYTHROCIN [Concomitant]
     Active Substance: ERYTHROMYCIN LACTOBIONATE
  7. VIMPAT [Concomitant]
     Active Substance: LACOSAMIDE
     Route: 042
     Dates: start: 20170806
  8. BACTRIM [Concomitant]
     Active Substance: SULFAMETHOXAZOLE\TRIMETHOPRIM
     Route: 042
     Dates: start: 20170803, end: 20170817
  9. KARDEGIC [Concomitant]
     Active Substance: ASPIRIN DL-LYSINE
  10. CARDENSIEL [Concomitant]
     Active Substance: BISOPROLOL FUMARATE
  11. FLAGYL [Concomitant]
     Active Substance: METRONIDAZOLE\METRONIDAZOLE HYDROCHLORIDE
     Route: 042
     Dates: start: 20170803, end: 20170824
  12. MABTHERA [Concomitant]
     Active Substance: RITUXIMAB
     Indication: PRODUCT USED FOR UNKNOWN INDICATION
     Route: 042
     Dates: start: 201705, end: 201705
  13. ADOPORT [Concomitant]
     Active Substance: TACROLIMUS
  14. SOLUPRED (FRANCE) [Concomitant]
     Active Substance: PREDNISOLONE
  15. CEFOTAXIME [Concomitant]
     Active Substance: CEFOTAXIME SODIUM
     Route: 042
     Dates: start: 20170803, end: 20170824
  16. ZYVOXID [Concomitant]
     Active Substance: LINEZOLID
     Route: 042
     Dates: start: 20170804, end: 20170817
  17. KEPPRA [Concomitant]
     Active Substance: LEVETIRACETAM
     Route: 042
     Dates: start: 20170806
  18. ONDANSETRON [Concomitant]
     Active Substance: ONDANSETRON
     Route: 042
     Dates: start: 20170803
  19. INEXIUM [Concomitant]
     Active Substance: ESOMEPRAZOLE

REACTIONS (5)
  - Infection [Fatal]
  - Aspergillus infection [Fatal]
  - Thrombocytopenia [Fatal]
  - Neutropenia [Fatal]
  - Incorrect dose administered [Fatal]

NARRATIVE: CASE EVENT DATE: 20170811
